FAERS Safety Report 7423882-8 (Version None)
Quarter: 2011Q2

REPORT INFORMATION
  Report Type: 
  Country: None (occurrence: None)
  Receive Date: 20110411
  Receipt Date: 20110330
  Transmission Date: 20111010
  Serious: Yes (Hospitalization)
  Sender: FDA-Public Use
  Company Number: JP-2011-10556

PATIENT
  Age: 54 Year
  Sex: Male
  Weight: 50 kg

DRUGS (7)
  1. SAMSCA [Suspect]
     Indication: PULMONARY OEDEMA
     Dosage: 7.5 MG MILLIGRAM(S), QAM, ORAL
     Route: 048
     Dates: start: 20110318, end: 20110320
  2. HANP (CARPERITIDE) [Concomitant]
  3. DOPAMINE HCL [Concomitant]
  4. ARTIST (CARVEDILOL) [Concomitant]
  5. LASIX [Concomitant]
  6. SELARA (EPLERENONE) [Concomitant]
  7. VANCOMYCIN [Concomitant]

REACTIONS (3)
  - URINE OUTPUT INCREASED [None]
  - HAEMODIALYSIS [None]
  - HYPERNATRAEMIA [None]
